FAERS Safety Report 15625423 (Version 2)
Quarter: 2019Q2

REPORT INFORMATION
  Report Type: Spontaneous
  Country: CN (occurrence: CN)
  Receive Date: 20181116
  Receipt Date: 20190425
  Transmission Date: 20190711
  Serious: No
  Sender: FDA-Public Use
  Company Number: CN-SUN PHARMACEUTICAL INDUSTRIES LTD-2018R1-191338

PATIENT
  Age: 82 Year
  Sex: Male

DRUGS (5)
  1. IRBESARTAN. [Suspect]
     Active Substance: IRBESARTAN
     Indication: HYPERTENSION
     Dosage: UNK
     Route: 065
  2. SOMATOSTATIN [Concomitant]
     Active Substance: SOMATOSTATIN
     Indication: HYPERCHLORHYDRIA
     Dosage: UNK
     Route: 065
  3. HYDROCHLOROTHIAZIDE. [Suspect]
     Active Substance: HYDROCHLOROTHIAZIDE
     Indication: HYPERTENSION
     Dosage: UNK
     Route: 065
  4. ISOSORBIDE. [Suspect]
     Active Substance: ISOSORBIDE
     Indication: HYPERTENSION
     Dosage: UNK
     Route: 065
  5. NITROGLYCERIN. [Suspect]
     Active Substance: NITROGLYCERIN
     Indication: HYPERTENSION
     Dosage: UNK
     Route: 065

REACTIONS (1)
  - No adverse event [Recovering/Resolving]
